FAERS Safety Report 17915371 (Version 1)
Quarter: 2020Q2

REPORT INFORMATION
  Report Type: Spontaneous
  Country: ZA (occurrence: ZA)
  Receive Date: 20200619
  Receipt Date: 20200619
  Transmission Date: 20200714
  Serious: Yes (Death, Other)
  Sender: FDA-Public Use
  Company Number: ZA-GLAXOSMITHKLINE-ZA2020EME101046

PATIENT
  Sex: Female

DRUGS (4)
  1. FLUANXOL [Suspect]
     Active Substance: FLUPENTIXOL
     Indication: DEPRESSION
     Dosage: 1 MG
     Route: 048
     Dates: end: 202004
  2. ELTROXIN [Suspect]
     Active Substance: LEVOTHYROXINE
     Indication: THYROID DISORDER
     Dosage: 200 UG
     Dates: end: 202004
  3. WELLBUTRIN [Suspect]
     Active Substance: BUPROPION HYDROCHLORIDE
     Indication: DEPRESSION
     Dosage: 150 MG
     Route: 048
     Dates: end: 202004
  4. TOPLEP [Suspect]
     Active Substance: TOPIRAMATE
     Indication: DEPRESSION
     Dosage: 100 MG
     Route: 048
     Dates: end: 202004

REACTIONS (1)
  - Death [Fatal]
